FAERS Safety Report 7774579-6 (Version None)
Quarter: 2011Q3

REPORT INFORMATION
  Report Type: 
  Country: None (occurrence: None)
  Receive Date: 20110923
  Receipt Date: 20110915
  Transmission Date: 20111222
  Serious: Yes (Other)
  Sender: FDA-Public Use
  Company Number: IE-AMGEN-IRLSP2011047720

PATIENT
  Sex: Female

DRUGS (10)
  1. ZIRPINE [Concomitant]
  2. FUCITHALMIC [Concomitant]
  3. PREDNISOLONE [Concomitant]
     Indication: RENAL FAILURE CHRONIC
  4. ASPIRIN [Concomitant]
  5. LANSOPRAZOLE [Concomitant]
  6. CALOGEN                            /00371903/ [Concomitant]
  7. ONE-ALPHA [Concomitant]
  8. ARANESP [Suspect]
     Indication: PRODUCT USED FOR UNKNOWN INDICATION
     Dosage: 40 MUG, QWK
     Route: 058
     Dates: start: 20110714
  9. MEMANTINE HYDROCHLORIDE [Concomitant]
  10. CLARITHROMYCIN [Concomitant]

REACTIONS (1)
  - KIDNEY INFECTION [None]
